FAERS Safety Report 9377547 (Version 1)
Quarter: 2013Q3

REPORT INFORMATION
  Report Type: Spontaneous
  Country: US (occurrence: US)
  Receive Date: 20130701
  Receipt Date: 20130701
  Transmission Date: 20140515
  Serious: Yes (Other)
  Sender: FDA-Public Use
  Company Number: US-ELI_LILLY_AND_COMPANY-US201306006313

PATIENT
  Sex: Female

DRUGS (13)
  1. HUMATROPE [Suspect]
     Indication: HYPOPITUITARISM
     Dosage: 0.6 MG, QD
     Route: 058
     Dates: start: 200407
  2. SANDOSTATIN LAR [Concomitant]
     Dosage: 30 MG, MONTHLY (1/M)
  3. KLONOPIN [Concomitant]
  4. SYNTHROID [Concomitant]
  5. VENLAFAXIN [Concomitant]
  6. ZOFRAN [Concomitant]
  7. TRAZODONE [Concomitant]
  8. ASPIRIN [Concomitant]
     Dosage: 81 MG, UNKNOWN
  9. CALCIUM + VITAMIN D [Concomitant]
  10. TOPAMAX [Concomitant]
  11. DILAUDID [Concomitant]
  12. MULTIVITAMIN [Concomitant]
  13. TYLENOL W/CODEINE NO. 3 [Concomitant]

REACTIONS (3)
  - Chronic myeloid leukaemia [Unknown]
  - Cardiac disorder [Recovered/Resolved]
  - Migraine [Not Recovered/Not Resolved]
